FAERS Safety Report 9263550 (Version 1)
Quarter: 2013Q2

REPORT INFORMATION
  Report Type: Spontaneous
  Country: US (occurrence: None)
  Receive Date: 20130426
  Receipt Date: 20130426
  Transmission Date: 20140414
  Serious: Yes (Hospitalization, Other)
  Sender: FDA-Public Use
  Company Number: IMP_06660_2013

PATIENT
  Age: 75 Year
  Sex: Female

DRUGS (5)
  1. METFORMIN [Suspect]
     Indication: PRODUCT USED FOR UNKNOWN INDICATION
     Dosage: ([1000 MG FREQUENCY UNKNOWN] DF)
  2. OXYCODONE [Suspect]
     Indication: PRODUCT USED FOR UNKNOWN INDICATION
     Dosage: (DF)
  3. GLIPIZIDE [Suspect]
     Indication: PRODUCT USED FOR UNKNOWN INDICATION
     Dosage: ([ 5 MG FREQUENCY UNKNOWN] DF)
  4. NATEGLINIDE [Suspect]
     Indication: PRODUCT USED FOR UNKNOWN INDICATION
     Dosage: ( [60 MG FREQUENCY UNKNOWN] DF)
  5. TRIMETHOPRIM SULFAMETHOXAZOLE [Suspect]
     Indication: PRODUCT USED FOR UNKNOWN INDICATION
     Dosage: (DF)

REACTIONS (4)
  - Decreased appetite [None]
  - Delirium [None]
  - Hypoglycaemia [None]
  - Oedema peripheral [None]
